FAERS Safety Report 8299795-9 (Version None)
Quarter: 2012Q2

REPORT INFORMATION
  Report Type: 
  Country: None (occurrence: None)
  Receive Date: 20120419
  Receipt Date: 20120419
  Transmission Date: 20120825
  Serious: No
  Sender: FDA-Public Use
  Company Number: None

PATIENT
  Age: 89 Year
  Sex: Female

DRUGS (1)
  1. PROMETHAZINE [Suspect]
     Dosage: 12.5
     Dates: start: 20120404, end: 20120404

REACTIONS (3)
  - DYSTONIA [None]
  - MENTAL STATUS CHANGES [None]
  - DYSARTHRIA [None]
